FAERS Safety Report 7970451-7 (Version None)
Quarter: 2011Q4

REPORT INFORMATION
  Report Type: 
  Country: None (occurrence: None)
  Receive Date: 20111122
  Receipt Date: 20110826
  Transmission Date: 20120403
  Serious: No
  Sender: FDA-Public Use
  Company Number: PHEH2011US00619

PATIENT
  Age: 47 Year
  Sex: Female

DRUGS (8)
  1. PRILOSEC [Concomitant]
  2. REGLAN [Concomitant]
  3. GILENYA [Suspect]
     Indication: MULTIPLE SCLEROSIS
     Dosage: 0.5 MG, QD, ORAL
     Route: 048
     Dates: start: 20110225
  4. SKELAXIN [Concomitant]
  5. WELLBUTRIN [Concomitant]
  6. CHANTIX [Concomitant]
  7. OXYCODONE HCL [Concomitant]
  8. NEURONTIN [Concomitant]

REACTIONS (2)
  - HEADACHE [None]
  - FATIGUE [None]
